FAERS Safety Report 9928216 (Version 1)
Quarter: 2014Q1

REPORT INFORMATION
  Report Type: Spontaneous
  Country: US (occurrence: None)
  Receive Date: 20140226
  Receipt Date: 20140226
  Transmission Date: 20141002
  Serious: Yes (Hospitalization, Other)
  Sender: FDA-Public Use
  Company Number: None

PATIENT
  Age: 16 Year
  Sex: Female
  Weight: 70.76 kg

DRUGS (1)
  1. MINOCYCLINE [Suspect]
     Indication: ACNE
     Route: 048
     Dates: start: 20140101, end: 20140206

REACTIONS (1)
  - Benign intracranial hypertension [None]
